FAERS Safety Report 6875291-8 (Version None)
Quarter: 2010Q3

REPORT INFORMATION
  Report Type: 
  Country: None (occurrence: None)
  Receive Date: 20100727
  Receipt Date: 20100716
  Transmission Date: 20110219
  Serious: Yes (Hospitalization)
  Sender: FDA-Public Use
  Company Number: US-JNJFOC-20100705508

PATIENT
  Sex: Female
  Weight: 54.43 kg

DRUGS (8)
  1. STELARA [Suspect]
     Indication: PSORIASIS
     Route: 058
  2. STELARA [Suspect]
     Route: 058
  3. STELARA [Suspect]
     Route: 058
  4. PREDNISONE [Concomitant]
     Route: 048
  5. SPIRIVA [Concomitant]
     Indication: ASTHMA
  6. OXYGEN [Concomitant]
     Indication: ASTHMA
  7. COUGH SYRUP WITH CODEINE (UNSPECIFIC) [Concomitant]
     Indication: COUGH
  8. MUCINEX [Concomitant]

REACTIONS (1)
  - DYSPNOEA [None]
